FAERS Safety Report 21041408 (Version 2)
Quarter: 2022Q3

REPORT INFORMATION
  Report Type: Report from Study
  Country: US (occurrence: US)
  Receive Date: 20220705
  Receipt Date: 20220712
  Transmission Date: 20221027
  Serious: Yes (Hospitalization)
  Sender: FDA-Public Use
  Company Number: US-SAMOHPHARM-2022003015

PATIENT

DRUGS (5)
  1. CARBAGLU [Suspect]
     Active Substance: CARGLUMIC ACID
     Indication: Hyperglycinaemia
     Dosage: 600 MG MORNING AND 400 MG EVENING, BID
     Dates: start: 20200905
  2. CARBAGLU [Suspect]
     Active Substance: CARGLUMIC ACID
     Dosage: 600 MILLIGRAM, BID
     Dates: start: 20220601
  3. LACTULOSE [Concomitant]
     Active Substance: LACTULOSE
     Indication: Product used for unknown indication
     Dosage: UNK
  4. CALCIUM GLUCONATE [Concomitant]
     Active Substance: CALCIUM GLUCONATE
     Indication: Product used for unknown indication
     Dosage: UNK
  5. LEVOCARNITINE [Concomitant]
     Active Substance: LEVOCARNITINE
     Indication: Product used for unknown indication
     Dosage: UNK

REACTIONS (5)
  - Anaemia [Unknown]
  - Constipation [Unknown]
  - Acidosis [Unknown]
  - Vomiting [Unknown]
  - Nausea [Recovering/Resolving]
